FAERS Safety Report 4803213-X (Version None)
Quarter: 2005Q3

REPORT INFORMATION
  Report Type: 
  Country: None (occurrence: None)
  Receive Date: 20050929
  Receipt Date: 20050621
  Transmission Date: 20060218
  Serious: Yes (Hospitalization)
  Sender: FDA-Public Use
  Company Number: 05P-163-0303682-00

PATIENT
  Age: 59 Year
  Sex: Male

DRUGS (10)
  1. HUMIRA [Suspect]
     Indication: RHEUMATOID ARTHRITIS
     Dosage: 40 MG, 1 IN 2 WK, SUBCUTANEOUS
     Route: 058
     Dates: start: 20040101, end: 20050414
  2. SINGULAIR [Concomitant]
  3. ATORVASTATIN CALCIUM [Concomitant]
  4. COMBAVENT [Concomitant]
  5. RAMIPRIL [Concomitant]
  6. AMIODARONE HYDROCHLORIDE [Concomitant]
  7. CARVEDILOL [Concomitant]
  8. DIGOXIN [Concomitant]
  9. POTASSIUM CHLORIDE [Concomitant]
  10. WARFARIN SODIUM [Concomitant]

REACTIONS (2)
  - CARDIAC FAILURE CONGESTIVE [None]
  - PNEUMONIA [None]
